FAERS Safety Report 5074129-1 (Version None)
Quarter: 2006Q3

REPORT INFORMATION
  Report Type: 
  Country: None (occurrence: None)
  Receive Date: 20060808
  Receipt Date: 20060727
  Transmission Date: 20061208
  Serious: Yes (Hospitalization)
  Sender: FDA-Public Use
  Company Number: AU-BRISTOL-MYERS SQUIBB COMPANY-13456587

PATIENT
  Age: 52 Year
  Sex: Female

DRUGS (6)
  1. MAXIPIME [Suspect]
     Indication: RESPIRATORY DISORDER
     Route: 042
     Dates: start: 20041108, end: 20041123
  2. TIMENTIN [Suspect]
     Indication: RESPIRATORY DISORDER
     Dosage: POWDER FOR INJECTION
     Route: 042
     Dates: start: 20041121, end: 20041122
  3. TOBRAMYCIN [Suspect]
     Indication: RESPIRATORY DISORDER
     Dates: start: 20041108, end: 20041123
  4. SPIRIVA [Concomitant]
     Indication: LUNG NEOPLASM MALIGNANT
  5. CALTRATE [Concomitant]
  6. SERETIDE [Concomitant]
     Indication: LUNG NEOPLASM MALIGNANT
     Dosage: 500/50 ACCUHALER
     Route: 055

REACTIONS (3)
  - LYMPHOPENIA [None]
  - NEUTROPENIA [None]
  - THROMBOCYTOPENIA [None]
